FAERS Safety Report 6913535-4 (Version None)
Quarter: 2010Q3

REPORT INFORMATION
  Report Type: 
  Country: None (occurrence: None)
  Receive Date: 20100803
  Receipt Date: 20100719
  Transmission Date: 20110219
  Serious: Yes (Death)
  Sender: FDA-Public Use
  Company Number: ENTC2010-0063

PATIENT
  Age: 77 Year
  Sex: Male

DRUGS (1)
  1. STALEVO 100 [Suspect]
     Dosage: 100/25/200 MG DAILY ; 150/37.5/200 MG DAILY

REACTIONS (1)
  - DEATH [None]
